FAERS Safety Report 5365529-0 (Version None)
Quarter: 2007Q2

REPORT INFORMATION
  Report Type: 
  Country: None (occurrence: None)
  Receive Date: 20070621
  Receipt Date: 20070615
  Transmission Date: 20071010
  Serious: Yes (Death)
  Sender: FDA-Public Use
  Company Number: A0657236A

PATIENT
  Age: 38 Year
  Sex: Female
  Weight: 52.7 kg

DRUGS (1)
  1. WELLBUTRIN SR [Suspect]
     Dosage: 150MG IN THE MORNING
     Route: 048
     Dates: start: 20050501

REACTIONS (2)
  - CARBON MONOXIDE POISONING [None]
  - COMPLETED SUICIDE [None]
